FAERS Safety Report 4699556-3 (Version None)
Quarter: 2005Q2

REPORT INFORMATION
  Report Type: 
  Country: None (occurrence: None)
  Receive Date: 20050622
  Receipt Date: 20050615
  Transmission Date: 20051028
  Serious: Yes (Other)
  Sender: FDA-Public Use
  Company Number: GBWYE744815JUN05

PATIENT
  Age: 61 Year
  Sex: Female

DRUGS (2)
  1. LODINE [Suspect]
     Indication: ARTHRITIS
     Dosage: 600 MG 1X PER 1 DAY, ORAL
     Route: 048
     Dates: start: 20050215, end: 20050222
  2. ATENOLOL [Concomitant]

REACTIONS (2)
  - RECTAL HAEMORRHAGE [None]
  - VISION BLURRED [None]
